FAERS Safety Report 23733217 (Version 1)
Quarter: 2024Q2

REPORT INFORMATION
  Report Type: Spontaneous
  Country: JP (occurrence: None)
  Receive Date: 20240411
  Receipt Date: 20240411
  Transmission Date: 20240716
  Serious: Yes (Hospitalization, Other)
  Sender: FDA-Public Use
  Company Number: 2024A082424

PATIENT
  Age: 80 Year
  Sex: Female

DRUGS (8)
  1. DAPAGLIFLOZIN [Suspect]
     Active Substance: DAPAGLIFLOZIN
     Indication: Type 2 diabetes mellitus
     Route: 048
     Dates: end: 20240226
  2. MOUNJARO [Concomitant]
     Active Substance: TIRZEPATIDE
     Dosage: DOSE UNKNOWN
  3. MOUNJARO [Concomitant]
     Active Substance: TIRZEPATIDE
     Route: 058
  4. ELDECALCITOL [Concomitant]
     Active Substance: ELDECALCITOL
     Dosage: AFTER BREAKFAST
     Route: 048
  5. ACTOS [Concomitant]
     Active Substance: PIOGLITAZONE HYDROCHLORIDE
     Dosage: AFTER BREAKFAST
     Route: 048
  6. ATORVASTATIN CALCIUM\EZETIMIBE [Concomitant]
     Active Substance: ATORVASTATIN CALCIUM\EZETIMIBE
     Dosage: AFTER BREAKFAST
     Route: 048
  7. AMLODIPINE BESYLATE [Concomitant]
     Active Substance: AMLODIPINE BESYLATE
     Dosage: AFTER BREAKFAST
     Route: 048
  8. MIGLITOL [Concomitant]
     Active Substance: MIGLITOL
     Dosage: IMMEDIATELY BEFORE EACH MEAL
     Route: 048

REACTIONS (5)
  - Emphysematous pyelonephritis [Recovered/Resolved]
  - Ureteric stenosis [Unknown]
  - Pleural effusion [Not Recovered/Not Resolved]
  - Ligament sprain [Unknown]
  - Renal function test abnormal [Unknown]

NARRATIVE: CASE EVENT DATE: 20240101
